FAERS Safety Report 21445471 (Version 1)
Quarter: 2022Q4

REPORT INFORMATION
  Report Type: Spontaneous
  Country: US (occurrence: None)
  Receive Date: 20221011
  Receipt Date: 20221011
  Transmission Date: 20230113
  Serious: Yes (Hospitalization)
  Sender: FDA-Public Use
  Company Number: None

PATIENT
  Age: 85 Year
  Sex: Male
  Weight: 107 kg

DRUGS (3)
  1. APIXABAN [Suspect]
     Active Substance: APIXABAN
     Indication: Pulmonary embolism
     Dosage: 5 MG BID PO
     Route: 048
     Dates: start: 20200221
  2. APIXABAN [Suspect]
     Active Substance: APIXABAN
     Indication: Atrial fibrillation
  3. ASPIRIN [Suspect]
     Active Substance: ASPIRIN
     Indication: Cardiovascular disorder
     Dosage: 81 MG EVERY DAY PO??DATES OF USE END: 09/25.202?
     Route: 048
     Dates: start: 20210219

REACTIONS (4)
  - Epistaxis [None]
  - Melaena [None]
  - Haemoglobin decreased [None]
  - Occult blood positive [None]

NARRATIVE: CASE EVENT DATE: 20220925
